FAERS Safety Report 12741079 (Version 1)
Quarter: 2016Q3

REPORT INFORMATION
  Report Type: Spontaneous
  Country: US (occurrence: US)
  Receive Date: 20160914
  Receipt Date: 20160914
  Transmission Date: 20161109
  Serious: No
  Sender: FDA-Public Use
  Company Number: US-TEVA-614549USA

PATIENT
  Sex: Female
  Weight: 90.8 kg

DRUGS (1)
  1. PANTOPRAZOLE [Suspect]
     Active Substance: PANTOPRAZOLE SODIUM
     Indication: GASTRITIS
     Dosage: 40 MILLIGRAM DAILY;
     Route: 048
     Dates: start: 20150921, end: 20151125

REACTIONS (5)
  - Paraesthesia oral [Unknown]
  - Muscle spasms [Unknown]
  - Heart rate increased [Unknown]
  - Muscle twitching [Unknown]
  - Dizziness [Unknown]

NARRATIVE: CASE EVENT DATE: 2015
